FAERS Safety Report 4704676-0 (Version None)
Quarter: 2005Q2

REPORT INFORMATION
  Report Type: 
  Country: None (occurrence: None)
  Receive Date: 20050630
  Receipt Date: 20050622
  Transmission Date: 20051028
  Serious: Yes (Other)
  Sender: FDA-Public Use
  Company Number: DE-MERCK-0506DEU00188

PATIENT
  Age: 47 Year
  Sex: Male

DRUGS (7)
  1. EMEND [Suspect]
     Indication: PROPHYLAXIS OF NAUSEA AND VOMITING
     Route: 048
  2. ENALAPRILAT [Concomitant]
     Route: 065
  3. BISOPROLOL FUMARATE [Concomitant]
     Route: 065
  4. PANTOPRAZOLE SODIUM [Concomitant]
     Route: 065
  5. PYRIDOSTIGMINE BROMIDE [Concomitant]
     Route: 065
  6. ONDANSETRON HYDROCHLORIDE [Concomitant]
     Route: 065
  7. CISPLATIN [Concomitant]
     Route: 065

REACTIONS (1)
  - EATON-LAMBERT SYNDROME [None]
